FAERS Safety Report 9320088 (Version 2)
Quarter: 2013Q2

REPORT INFORMATION
  Report Type: Spontaneous
  Country: CA (occurrence: CA)
  Receive Date: 20130530
  Receipt Date: 20130612
  Transmission Date: 20140414
  Serious: Yes (Other)
  Sender: FDA-Public Use
  Company Number: CA-ALEXION PHARMACEUTICALS INC.-A201300039

PATIENT
  Age: 8 Year
  Sex: Male
  Weight: 24 kg

DRUGS (10)
  1. SOLIRIS 300MG [Suspect]
     Indication: HAEMOLYTIC URAEMIC SYNDROME
     Dosage: 600 MG, QW
     Route: 042
     Dates: start: 20130101, end: 20130108
  2. HYDRALAZINE [Concomitant]
     Indication: HYPERTENSION
     Dosage: 4 MG, Q4H PRN
     Route: 042
     Dates: start: 201212
  3. NIFEDIPINE [Concomitant]
     Indication: HYPERTENSION
     Dosage: 2.5 MG, Q1H PRN
     Route: 048
     Dates: start: 201212
  4. ACETAMINOPHEN [Concomitant]
     Indication: PAIN
     Dosage: 350 MG, Q4H PRN
     Route: 048
  5. ACETAMINOPHEN [Concomitant]
     Indication: PYREXIA
  6. AMLODIPINE [Concomitant]
     Indication: HYPERTENSION
     Dosage: 2.5 MG, QD
     Route: 048
     Dates: start: 201212
  7. AMPICILLIN [Concomitant]
     Indication: PROPHYLAXIS
     Dosage: 600 MG, Q12H
     Route: 042
     Dates: start: 201212
  8. CALCIUM CARBONATE [Concomitant]
     Indication: SUPPLEMENTATION THERAPY
     Dosage: 200 MG, TID
     Route: 048
     Dates: start: 201212
  9. PHENYTOIN [Concomitant]
     Indication: CONVULSION
     Dosage: 50 MG, Q8H
     Route: 042
     Dates: start: 201212
  10. ZANTAC [Concomitant]
     Dosage: 15 MG, BID
     Route: 048
     Dates: start: 201212

REACTIONS (1)
  - Hepatic enzyme increased [Unknown]
